FAERS Safety Report 5924986-9 (Version None)
Quarter: 2008Q3

REPORT INFORMATION
  Report Type: 
  Country: None (occurrence: None)
  Receive Date: 20080909
  Receipt Date: 20080512
  Transmission Date: 20090109
  Serious: Yes (Death, Other)
  Sender: FDA-Public Use
  Company Number: 163-20785-08040514

PATIENT
  Age: 71 Year
  Sex: Female

DRUGS (10)
  1. THALOMID [Suspect]
     Indication: MYELOFIBROSIS
     Dosage: 50 MG, 1 IN 1 D, ORAL
     Route: 048
     Dates: start: 20051006, end: 20080320
  2. PREDNISONE [Concomitant]
  3. METOPROLOL TARTRATE [Concomitant]
  4. PROTONIX [Concomitant]
  5. ISOSORBIDE (ISOSORBIDE) [Concomitant]
  6. RANITIDINE [Concomitant]
  7. DARVOCET [Concomitant]
  8. LORTAB [Concomitant]
  9. ALLOPURINOL [Concomitant]
  10. GLUCOSAMINE (GLUCOSAMINE) [Concomitant]

REACTIONS (2)
  - ACUTE LEUKAEMIA [None]
  - PNEUMONIA [None]
